FAERS Safety Report 4795766-5 (Version None)
Quarter: 2005Q4

REPORT INFORMATION
  Report Type: 
  Country: None (occurrence: None)
  Receive Date: 20051012
  Receipt Date: 20051006
  Transmission Date: 20060501
  Serious: Yes (Hospitalization)
  Sender: FDA-Public Use
  Company Number: 200518928GDDC

PATIENT
  Age: 30 Year
  Sex: Male

DRUGS (2)
  1. LANTUS [Suspect]
     Route: 058
  2. HUMALOG [Concomitant]

REACTIONS (1)
  - MALAISE [None]
